FAERS Safety Report 6091245-6 (Version None)
Quarter: 2009Q1

REPORT INFORMATION
  Report Type: 
  Country: None (occurrence: None)
  Receive Date: 20090220
  Receipt Date: 20090220
  Transmission Date: 20090719
  Serious: Yes (Life-Threatening, Hospitalization)
  Sender: FDA-Public Use
  Company Number: None

PATIENT
  Age: 87 Year
  Sex: Male
  Weight: 29.4838 kg

DRUGS (8)
  1. LIPITOR [Suspect]
     Indication: CORONARY ARTERY DISEASE
     Dosage: 10MG ONCE DAILY PO
     Route: 048
  2. SIMVASTATIN [Suspect]
     Indication: DYSLIPIDAEMIA
     Dosage: 10 MG ONCE DAILY PO
     Route: 048
  3. ASPIRIN [Concomitant]
  4. CLOPIDOGREL [Concomitant]
  5. ACE INHIBITORS/ARBS [Concomitant]
  6. THIAZIDES [Concomitant]
  7. HYPOGLYCEMIC DRUGS [Concomitant]
  8. INSULINS [Concomitant]

REACTIONS (3)
  - COLON CANCER [None]
  - CONSTIPATION [None]
  - RECTAL HAEMORRHAGE [None]
